FAERS Safety Report 13446172 (Version 2)
Quarter: 2017Q2

REPORT INFORMATION
  Report Type: Spontaneous
  Country: DE (occurrence: DE)
  Receive Date: 20170417
  Receipt Date: 20170504
  Transmission Date: 20170830
  Serious: Yes (Other)
  Sender: FDA-Public Use
  Company Number: DE-B.I. PHARMACEUTICALS,INC./RIDGEFIELD-2017-BI-020614

PATIENT
  Age: 84 Year
  Sex: Female

DRUGS (1)
  1. PRADAXA [Suspect]
     Active Substance: DABIGATRAN ETEXILATE MESYLATE
     Indication: ATRIAL FIBRILLATION
     Route: 065

REACTIONS (2)
  - Deep vein thrombosis [Unknown]
  - Varicose vein [Not Recovered/Not Resolved]
